FAERS Safety Report 9509521 (Version 2)
Quarter: 2013Q3

REPORT INFORMATION
  Report Type: Spontaneous
  Country: US (occurrence: US)
  Receive Date: 20130909
  Receipt Date: 20130909
  Transmission Date: 20140515
  Serious: No
  Sender: FDA-Public Use
  Company Number: US-BRISTOL-MYERS SQUIBB COMPANY-18930396

PATIENT
  Age: 26 Year
  Sex: Female
  Weight: 48.98 kg

DRUGS (3)
  1. ABILIFY [Suspect]
     Indication: ANXIETY
     Route: 048
     Dates: start: 20121127, end: 20121203
  2. ABILIFY [Suspect]
     Indication: DEPRESSION
     Route: 048
     Dates: start: 20121127, end: 20121203
  3. CITALOPRAM [Concomitant]
     Route: 048

REACTIONS (3)
  - Psychomotor hyperactivity [Unknown]
  - Insomnia [Recovered/Resolved]
  - Palpitations [Recovered/Resolved]
